FAERS Safety Report 7180686-1 (Version None)
Quarter: 2010Q4

REPORT INFORMATION
  Report Type: 
  Country: None (occurrence: None)
  Receive Date: 20101221
  Receipt Date: 20101217
  Transmission Date: 20110411
  Serious: Yes (Death, Hospitalization)
  Sender: FDA-Public Use
  Company Number: AR-B.I. PHARMACEUTICALS,INC./RIDGEFIELD-2010-RA-00435RA

PATIENT
  Sex: Male
  Weight: 80 kg

DRUGS (5)
  1. PRADAXA [Suspect]
     Indication: THROMBOSIS PROPHYLAXIS
     Dosage: 2 CAPSULES DAILY. STRENGTH: UNKNOWN
     Route: 048
     Dates: start: 20101001, end: 20101101
  2. MICARDIS [Concomitant]
     Indication: HYPERTENSION
     Route: 048
  3. COLMIBE [Concomitant]
     Indication: TRANSIENT ISCHAEMIC ATTACK
     Route: 048
     Dates: start: 20090101
  4. OMEPRAZOLE [Concomitant]
     Indication: PROPHYLAXIS AGAINST GASTROINTESTINAL ULCER
     Route: 048
     Dates: start: 20080101
  5. TAFIROL [Concomitant]
     Indication: ANALGESIC THERAPY
     Route: 048
     Dates: start: 20090101

REACTIONS (5)
  - ATRIAL FIBRILLATION [None]
  - CARDIO-RESPIRATORY ARREST [None]
  - GASTROINTESTINAL HAEMORRHAGE [None]
  - INTESTINAL STRANGULATION [None]
  - PERITONITIS [None]
